FAERS Safety Report 21450004 (Version 2)
Quarter: 2023Q1

REPORT INFORMATION
  Report Type: Report from Study
  Country: US (occurrence: US)
  Receive Date: 20221013
  Receipt Date: 20230325
  Transmission Date: 20230418
  Serious: No
  Sender: FDA-Public Use
  Company Number: US-ABBVIE-4152967

PATIENT
  Age: 44 Year
  Sex: Female

DRUGS (3)
  1. SKYRIZI [Suspect]
     Active Substance: RISANKIZUMAB-RZAA
     Indication: Psoriasis
     Dosage: FORM STRENGTH 150 MILLIGRAM
     Route: 058
     Dates: start: 20220908, end: 20230210
  2. SKYRIZI [Suspect]
     Active Substance: RISANKIZUMAB-RZAA
     Dosage: WEEK 0?FORM STRENGTH 150 MILLIGRAM
     Route: 058
     Dates: start: 20211221, end: 20211221
  3. SKYRIZI [Suspect]
     Active Substance: RISANKIZUMAB-RZAA
     Dosage: WEEK 4?FORM STRENGTH 150 MILLIGRAM
     Route: 058
     Dates: start: 20220114, end: 202204

REACTIONS (3)
  - Cellulitis [Recovered/Resolved]
  - Psoriasis [Unknown]
  - Psoriasis [Recovered/Resolved]

NARRATIVE: CASE EVENT DATE: 20220401
